FAERS Safety Report 8495117-9 (Version None)
Quarter: 2012Q3

REPORT INFORMATION
  Report Type: 
  Country: None (occurrence: None)
  Receive Date: 20120709
  Receipt Date: 20120702
  Transmission Date: 20120928
  Serious: Yes (Hospitalization, Other)
  Sender: FDA-Public Use
  Company Number: GB-JNJFOC-20120510214

PATIENT
  Sex: Female

DRUGS (2)
  1. DURAGESIC-100 [Suspect]
     Indication: PRODUCT USED FOR UNKNOWN INDICATION
     Route: 062
  2. OXYCODONE HCL [Concomitant]
     Indication: PRODUCT USED FOR UNKNOWN INDICATION
     Route: 048

REACTIONS (8)
  - HAEMORRHAGE [None]
  - LACERATION [None]
  - DEMENTIA [None]
  - CEREBRAL HAEMORRHAGE [None]
  - FALL [None]
  - PRURITUS [None]
  - FEELING OF BODY TEMPERATURE CHANGE [None]
  - ECZEMA [None]
